FAERS Safety Report 5113729-7 (Version None)
Quarter: 2006Q3

REPORT INFORMATION
  Report Type: 
  Country: None (occurrence: None)
  Receive Date: 20060921
  Receipt Date: 20060921
  Transmission Date: 20061208
  Serious: Yes (Hospitalization)
  Sender: FDA-Public Use
  Company Number: None

PATIENT
  Age: 62 Year
  Sex: Male
  Weight: 68.8 kg

DRUGS (5)
  1. CYCLOSPORINE [Suspect]
     Indication: PROPHYLAXIS AGAINST TRANSPLANT REJECTION
     Dosage: 175 MG  PO  BID
     Route: 048
     Dates: start: 20060125, end: 20060319
  2. ACYCLOVIR [Concomitant]
  3. FLUCONAZOLE [Concomitant]
  4. MAGNESIUM OXIDE [Concomitant]
  5. OS-CAL [Concomitant]

REACTIONS (5)
  - BLOOD SODIUM DECREASED [None]
  - BONE MARROW TRANSPLANT [None]
  - DRUG LEVEL BELOW THERAPEUTIC [None]
  - GRAFT VERSUS HOST DISEASE [None]
  - GRAND MAL CONVULSION [None]
